FAERS Safety Report 15058227 (Version 1)
Quarter: 2018Q2

REPORT INFORMATION
  Report Type: Spontaneous
  Country: DE (occurrence: DE)
  Receive Date: 20180625
  Receipt Date: 20180625
  Transmission Date: 20180711
  Serious: Yes (Death)
  Sender: FDA-Public Use
  Company Number: DE-009507513-1806DEU008001

PATIENT
  Age: 65 Year
  Sex: Male
  Weight: 80 kg

DRUGS (1)
  1. KEYTRUDA [Suspect]
     Active Substance: PEMBROLIZUMAB
     Indication: NON-SMALL CELL LUNG CANCER
     Dosage: 200 MG, UNK
     Route: 042
     Dates: start: 20180525

REACTIONS (8)
  - Respiratory distress [Unknown]
  - Pneumonia [Unknown]
  - Tachycardia [Unknown]
  - Cytokine release syndrome [Fatal]
  - Acute myocardial infarction [Unknown]
  - Malignant neoplasm progression [Fatal]
  - Condition aggravated [Fatal]
  - Metastases to central nervous system [Fatal]

NARRATIVE: CASE EVENT DATE: 20180525
